FAERS Safety Report 8325267-9 (Version None)
Quarter: 2012Q2

REPORT INFORMATION
  Report Type: 
  Country: None (occurrence: None)
  Receive Date: 20120501
  Receipt Date: 20120423
  Transmission Date: 20120825
  Serious: Yes (Death, Hospitalization)
  Sender: FDA-Public Use
  Company Number: DE-ROCHE-749531

PATIENT
  Sex: Female
  Weight: 57.9 kg

DRUGS (17)
  1. METOCLOPRAMIDE [Concomitant]
     Dosage: IF NECESSARY
  2. RAMIPRIL [Concomitant]
  3. IBUPROFEN [Concomitant]
  4. MIRTAZAPINE [Concomitant]
  5. KABIVEN [Concomitant]
     Dosage: DOSE 2100 KCAL
  6. AVASTIN [Suspect]
     Indication: BREAST CANCER
     Dosage: DATE OF LAST DOSE PRIOR TO SAE 28 OCT 2010. DAY1 EVERY 3 WEEKS.DOSE,FREQUENCY TAKEN FROM PROTOCOL.FO
     Route: 042
  7. PANTOPRAZOLE [Concomitant]
  8. PERENTEROL [Concomitant]
     Dosage: DRUG: PERENTEROL FORTE
  9. XELODA [Suspect]
     Indication: BREAST CANCER
     Dosage: DATE OF LAST DOSE PRIOR TO SAE 28 OCT 2010. TWICE DAILY ON DAYS 1-14 OF EVERY THREE WEEKS, DOSE AND
     Route: 048
  10. BUDESONIDE [Concomitant]
  11. AMLODIPINE [Concomitant]
  12. METOCLOPRAMIDE [Concomitant]
     Dosage: TOTAL DAILY DOSE REPORTED AS 2X20 GTT, DRUG NAME: MCP GTT
  13. LAXOBERAL [Concomitant]
     Dosage: DAILY DOSE REPORTED: AS NEEDED.
  14. VINORELBINE TARTRATE [Suspect]
     Indication: BREAST CANCER
     Dosage: DATE OF LAST DOSE PRIOR TO SAE 08 OCT 2010. DAYS 1+8 EVERY THREE WEEKS CYCLE, ROUTE, DOSE AND FREQUE
     Route: 042
  15. METOPROLOL TARTRATE [Concomitant]
     Dosage: TDD: 2 DF
  16. TEGRETOL [Concomitant]
  17. ENOXAPARIN SODIUM [Concomitant]
     Dosage: IF NECESSARY

REACTIONS (6)
  - PAIN [None]
  - DISEASE PROGRESSION [None]
  - PLEURAL EFFUSION [None]
  - LUNG INFECTION [None]
  - METASTASES TO MENINGES [None]
  - GENERAL PHYSICAL HEALTH DETERIORATION [None]
